FAERS Safety Report 8105886-5 (Version None)
Quarter: 2012Q1

REPORT INFORMATION
  Report Type: 
  Country: None (occurrence: None)
  Receive Date: 20120202
  Receipt Date: 20120125
  Transmission Date: 20120608
  Serious: No
  Sender: FDA-Public Use
  Company Number: US-BIOGENIDEC-2011BI043016

PATIENT
  Sex: Female

DRUGS (3)
  1. TYSABRI [Suspect]
     Indication: MULTIPLE SCLEROSIS
     Route: 042
     Dates: start: 20071001, end: 20080407
  2. TYSABRI [Suspect]
     Route: 042
     Dates: start: 20080917, end: 20081022
  3. TYSABRI [Suspect]
     Route: 042
     Dates: start: 20090102

REACTIONS (5)
  - GAIT DISTURBANCE [None]
  - ROAD TRAFFIC ACCIDENT [None]
  - INFUSION SITE SCAR [None]
  - MUSCULAR WEAKNESS [None]
  - MYALGIA [None]
